FAERS Safety Report 5725838-X (Version None)
Quarter: 2008Q2

REPORT INFORMATION
  Report Type: 
  Country: None (occurrence: None)
  Receive Date: 20080429
  Receipt Date: 20080415
  Transmission Date: 20081010
  Serious: Yes (Hospitalization)
  Sender: FDA-Public Use
  Company Number: 012992

PATIENT
  Sex: Male

DRUGS (9)
  1. PRIALT [Suspect]
     Indication: COMPLEX REGIONAL PAIN SYNDROME
     Dosage: 0.02UG, ONCE/HOUR, INTRATHECAL, 0.56 UG, ONCE/HOUR, INTRATHECAL, 0.02 UG, ONCE/HOUR, INTRATHECAL
     Route: 037
     Dates: start: 20070101, end: 20070101
  2. PRIALT [Suspect]
     Indication: COMPLEX REGIONAL PAIN SYNDROME
     Dosage: 0.02UG, ONCE/HOUR, INTRATHECAL, 0.56 UG, ONCE/HOUR, INTRATHECAL, 0.02 UG, ONCE/HOUR, INTRATHECAL
     Route: 037
     Dates: end: 20080112
  3. PRIALT [Suspect]
     Indication: COMPLEX REGIONAL PAIN SYNDROME
     Dosage: 0.02UG, ONCE/HOUR, INTRATHECAL, 0.56 UG, ONCE/HOUR, INTRATHECAL, 0.02 UG, ONCE/HOUR, INTRATHECAL
     Route: 037
     Dates: start: 20071204
  4. ANALGESICS() [Suspect]
     Indication: PAIN
     Dosage: ORAL
     Route: 048
  5. ANTIDEPRESSANTS() [Suspect]
     Indication: DRUG USE FOR UNKNOWN INDICATION
     Dosage: ORAL
     Route: 048
  6. GABAPENTIN [Concomitant]
  7. AMITRIPTLINE HCL [Concomitant]
  8. AVINZA [Concomitant]
  9. MORPHINE [Concomitant]

REACTIONS (3)
  - INJURY [None]
  - LOSS OF CONSCIOUSNESS [None]
  - SUICIDE ATTEMPT [None]
